FAERS Safety Report 17524432 (Version 1)
Quarter: 2020Q1

REPORT INFORMATION
  Report Type: Spontaneous
  Country: FI (occurrence: FI)
  Receive Date: 20200311
  Receipt Date: 20200311
  Transmission Date: 20200409
  Serious: Yes (Death)
  Sender: FDA-Public Use
  Company Number: FI-TEVA-2020-FI-1196836

PATIENT
  Age: 76 Year
  Sex: Male

DRUGS (7)
  1. RENITEC COMP [Concomitant]
     Active Substance: ENALAPRIL MALEATE\HYDROCHLOROTHIAZIDE
  2. APURIN SANDOZ [Concomitant]
     Active Substance: ALLOPURINOL
  3. MAREVAN FORTE [Concomitant]
     Active Substance: WARFARIN SODIUM
  4. SIMVASTATIN ACTAVIS [Concomitant]
     Active Substance: SIMVASTATIN
  5. PANADOL FORTE [Concomitant]
  6. DOXORUBICIN [Suspect]
     Active Substance: DOXORUBICIN
     Indication: HEPATOCELLULAR CARCINOMA
     Dosage: 120,MG,X1
     Route: 013
     Dates: start: 20200108, end: 20200108
  7. KALEORID [Concomitant]
     Active Substance: POTASSIUM CHLORIDE

REACTIONS (9)
  - Confusional state [Fatal]
  - Cholecystectomy [Fatal]
  - Pancreatic necrosis [Fatal]
  - Duodenal perforation [Fatal]
  - Impaired gastric emptying [Fatal]
  - Gallbladder necrosis [Fatal]
  - Gallbladder rupture [Fatal]
  - Septic shock [Fatal]
  - Transcatheter arterial chemoembolisation [Fatal]

NARRATIVE: CASE EVENT DATE: 20200113
